FAERS Safety Report 20657399 (Version 2)
Quarter: 2023Q1

REPORT INFORMATION
  Report Type: Report from Study
  Country: US (occurrence: None)
  Receive Date: 20220331
  Receipt Date: 20230307
  Transmission Date: 20230417
  Serious: Yes (Other)
  Sender: FDA-Public Use
  Company Number: US-ROCHE-2935025

PATIENT
  Age: 65 Year
  Sex: Female
  Weight: 72.2 kg

DRUGS (2)
  1. ATEZOLIZUMAB [Suspect]
     Active Substance: ATEZOLIZUMAB
     Indication: Small cell lung cancer
     Dosage: LAST ADMINISTERED DATE 15/APR/2021
     Route: 042
     Dates: start: 20210211, end: 20210420
  2. TALAZOPARIB [Suspect]
     Active Substance: TALAZOPARIB
     Indication: Small cell lung cancer
     Dosage: LAST ADMINISTERED DATE 18/APR/2021
     Route: 065
     Dates: start: 20210211

REACTIONS (6)
  - Dizziness [Recovered/Resolved]
  - Syncope [Unknown]
  - Anaemia [Unknown]
  - Alanine aminotransferase increased [Unknown]
  - Aspartate aminotransferase increased [Unknown]
  - Blood alkaline phosphatase increased [Unknown]

NARRATIVE: CASE EVENT DATE: 20210211
